FAERS Safety Report 6038318-1 (Version None)
Quarter: 2009Q1

REPORT INFORMATION
  Report Type: 
  Country: None (occurrence: None)
  Receive Date: 20090115
  Receipt Date: 20090107
  Transmission Date: 20090719
  Serious: Yes (Hospitalization, Other)
  Sender: FDA-Public Use
  Company Number: US-BAYER-200910746GPV

PATIENT
  Sex: Female
  Weight: 175 kg

DRUGS (3)
  1. LEVONORGESTREL INTRAUTERINE DEVICE [Suspect]
     Indication: ENDOMETRIAL CANCER
     Route: 015
     Dates: start: 20030101
  2. LEVONORGESTREL INTRAUTERINE DEVICE [Suspect]
     Route: 015
  3. MEGACE [Concomitant]
     Indication: ENDOMETRIAL CANCER
     Route: 065
     Dates: start: 20030101

REACTIONS (3)
  - HAEMOGLOBIN DECREASED [None]
  - INTRA-UTERINE CONTRACEPTIVE DEVICE EXPELLED [None]
  - UTERINE HAEMORRHAGE [None]
